FAERS Safety Report 25007245 (Version 1)
Quarter: 2025Q1

REPORT INFORMATION
  Report Type: Spontaneous
  Country: US (occurrence: US)
  Receive Date: 20250225
  Receipt Date: 20250225
  Transmission Date: 20250409
  Serious: Yes (Other)
  Sender: SANOFI AVENTIS
  Company Number: US-SA-2025SA050639

PATIENT
  Age: 73 Year
  Sex: Male

DRUGS (21)
  1. REZUROCK [Suspect]
     Active Substance: BELUMOSUDIL
     Indication: Chronic graft versus host disease
     Dosage: 200 MG, BID
     Route: 048
  2. OMEPRAZOLE [Concomitant]
     Active Substance: OMEPRAZOLE
  3. ACETAMINOPHEN [Concomitant]
     Active Substance: ACETAMINOPHEN
  4. ACYCLOVIR [Concomitant]
     Active Substance: ACYCLOVIR
  5. ASPIRIN [Concomitant]
     Active Substance: ASPIRIN
  6. BUMETANIDE [Concomitant]
     Active Substance: BUMETANIDE
  7. CARVEDILOL [Concomitant]
     Active Substance: CARVEDILOL
  8. CYANOCOBALAMIN [Concomitant]
     Active Substance: CYANOCOBALAMIN
  9. CYCLOBENZAPRINE [Concomitant]
     Active Substance: CYCLOBENZAPRINE
  10. ELIQUIS [Concomitant]
     Active Substance: APIXABAN
  11. ENTRESTO [Concomitant]
     Active Substance: SACUBITRIL\VALSARTAN
  12. GABAPENTIN [Concomitant]
     Active Substance: GABAPENTIN
  13. GLUCOSAMINE [Concomitant]
     Active Substance: GLUCOSAMINE
  14. IMIQUIMOD [Concomitant]
     Active Substance: IMIQUIMOD
  15. LEVOTHYROXINE [Concomitant]
     Active Substance: LEVOTHYROXINE
  16. PYRIDOXINE [Concomitant]
     Active Substance: PYRIDOXINE
  17. SIROLIMUS [Concomitant]
     Active Substance: SIROLIMUS
  18. SULFAMETHOXAZOLE [Concomitant]
     Active Substance: SULFAMETHOXAZOLE
  19. TRIAMCINOLONE [Concomitant]
     Active Substance: TRIAMCINOLONE
  20. HERBALS\TURMERIC [Concomitant]
     Active Substance: HERBALS\TURMERIC
  21. ZINC [Concomitant]
     Active Substance: ZINC

REACTIONS (1)
  - Neuropathy peripheral [Unknown]
